FAERS Safety Report 10018440 (Version 1)
Quarter: 2014Q1

REPORT INFORMATION
  Report Type: Spontaneous
  Country: US (occurrence: None)
  Receive Date: 20140314
  Receipt Date: 20140314
  Transmission Date: 20141002
  Serious: Yes (Disabling)
  Sender: FDA-Public Use
  Company Number: None

PATIENT
  Age: 58 Year
  Sex: Male

DRUGS (1)
  1. ENBREL 50 MG/ML AMGEN [Suspect]
     Indication: PSORIASIS
     Dosage: 1 INJECTION 2X / WEEK  INTO THE MUSCLE

REACTIONS (2)
  - Cognitive disorder [None]
  - Demyelination [None]
